FAERS Safety Report 24357105 (Version 1)
Quarter: 2024Q3

REPORT INFORMATION
  Report Type: Spontaneous
  Country: US (occurrence: None)
  Receive Date: 20240923
  Receipt Date: 20240923
  Transmission Date: 20241017
  Serious: No
  Sender: Public
  Company Number: None

PATIENT
  Age: 30 Year
  Sex: Male

DRUGS (1)
  1. TACROLIMUS [Suspect]
     Active Substance: TACROLIMUS
     Indication: Renal transplant
     Dosage: 0.5MG : EVERY EVENIN BY MOUTH?
     Route: 048
     Dates: start: 202406

REACTIONS (7)
  - Chills [None]
  - Pyrexia [None]
  - Nausea [None]
  - Vomiting [None]
  - Food poisoning [None]
  - Gastrointestinal viral infection [None]
  - Decreased appetite [None]

NARRATIVE: CASE EVENT DATE: 20240919
